FAERS Safety Report 15227074 (Version 2)
Quarter: 2018Q3

REPORT INFORMATION
  Report Type: Spontaneous
  Country: US (occurrence: US)
  Receive Date: 20180801
  Receipt Date: 20180927
  Transmission Date: 20181010
  Serious: Yes (Other)
  Sender: FDA-Public Use
  Company Number: US-PFIZER INC-2018306967

PATIENT
  Age: 74 Year
  Sex: Female
  Weight: 64 kg

DRUGS (1)
  1. LATANOPROST. [Suspect]
     Active Substance: LATANOPROST
     Indication: GLAUCOMA
     Dosage: 2 DF, 1X/DAY, DROP IN EACH EYE AT NIGHT BEFORE BED
     Route: 047
     Dates: end: 20180725

REACTIONS (5)
  - Atrial fibrillation [Unknown]
  - Product packaging issue [Unknown]
  - Renal failure [Unknown]
  - Drug dose omission [Unknown]
  - Localised infection [Unknown]
